FAERS Safety Report 16416646 (Version 1)
Quarter: 2019Q2

REPORT INFORMATION
  Report Type: Spontaneous
  Country: US (occurrence: US)
  Receive Date: 20190611
  Receipt Date: 20190611
  Transmission Date: 20190711
  Serious: No
  Sender: FDA-Public Use
  Company Number: US-009507513-1905USA013702

PATIENT
  Age: 52 Year
  Sex: Male

DRUGS (9)
  1. MEROPENEM. [Concomitant]
     Active Substance: MEROPENEM
  2. LEVOTHYROXINE SODIUM. [Concomitant]
     Active Substance: LEVOTHYROXINE SODIUM
     Indication: HORMONE REPLACEMENT THERAPY
  3. CEFTRIAXONE. [Concomitant]
     Active Substance: CEFTRIAXONE
  4. IMUNOGLOBULIN (GLOBULIN, IMMUNE) [Concomitant]
     Active Substance: IMMUNE GLOBULIN NOS
     Dosage: 540 MG/DL, AND A SECOND DOSE WAS GIVEN ON HD6.
  5. REBETOL [Suspect]
     Active Substance: RIBAVIRIN
     Indication: RESPIRATORY SYNCYTIAL VIRUS INFECTION
     Dosage: 400 MG EVERY 8 H
     Route: 048
  6. PREDNISONE. [Concomitant]
     Active Substance: PREDNISONE
     Dosage: 10 MG EVERY OTHER DAY
  7. VANCOMYCIN [Concomitant]
     Active Substance: VANCOMYCIN
  8. SULFAMETHOXAZOLE (+) TRIMETHOPRIM [Concomitant]
     Active Substance: SULFAMETHOXAZOLE\TRIMETHOPRIM
     Indication: ANTIFUNGAL PROPHYLAXIS
  9. AZITHROMYCIN ANHYDROUS. [Concomitant]
     Active Substance: AZITHROMYCIN ANHYDROUS

REACTIONS (2)
  - Therapeutic response unexpected [Unknown]
  - Product use in unapproved indication [Unknown]
